FAERS Safety Report 8928257 (Version 1)
Quarter: 2012Q4

REPORT INFORMATION
  Report Type: Spontaneous
  Country: US (occurrence: None)
  Receive Date: 20121120
  Receipt Date: 20121120
  Transmission Date: 20130627
  Serious: Yes (Disabling, Other)
  Sender: FDA-Public Use
  Company Number: US-1195250

PATIENT
  Age: 50 Year
  Sex: Male

DRUGS (1)
  1. NEOMYCIN W/ POLYMYCIN B/ HYDROCORTISONE [Suspect]
     Dosage: AU Aurical (otic) )
     Route: 001
     Dates: start: 2010

REACTIONS (1)
  - Deafness bilateral [None]
